FAERS Safety Report 6572917-3 (Version None)
Quarter: 2010Q1

REPORT INFORMATION
  Report Type: 
  Country: None (occurrence: None)
  Receive Date: 20100208
  Receipt Date: 20100201
  Transmission Date: 20100710
  Serious: Yes (Hospitalization)
  Sender: FDA-Public Use
  Company Number: US-BIOGENIDEC-2009BI009263

PATIENT
  Age: 45 Year
  Sex: Male
  Weight: 108 kg

DRUGS (3)
  1. TYSABRI [Suspect]
     Indication: CROHN'S DISEASE
     Route: 042
     Dates: start: 20090106, end: 20090201
  2. TYSABRI [Suspect]
     Route: 042
     Dates: start: 20090928
  3. VITAMIN B12 INJECTIONS [Concomitant]
     Indication: VITAMIN B12 DEFICIENCY
     Dates: start: 20070101

REACTIONS (13)
  - CROHN'S DISEASE [None]
  - ENTERITIS INFECTIOUS [None]
  - FALL [None]
  - GANGRENE [None]
  - GASTROINTESTINAL STOMA COMPLICATION [None]
  - HYPOAESTHESIA [None]
  - LOSS OF CONSCIOUSNESS [None]
  - OEDEMA PERIPHERAL [None]
  - OPEN WOUND [None]
  - PAIN IN EXTREMITY [None]
  - POST PROCEDURAL INFECTION [None]
  - PYODERMA GANGRENOSUM [None]
  - VOLVULUS [None]
